FAERS Safety Report 16895649 (Version 1)
Quarter: 2019Q4

REPORT INFORMATION
  Report Type: Spontaneous
  Country: US (occurrence: US)
  Receive Date: 20190814
  Receipt Date: 20190814
  Transmission Date: 20200122
  Serious: Yes (Disabling)
  Sender: FDA-Public Use
  Company Number: None

PATIENT

DRUGS (1)
  1. CIPRO [Suspect]
     Active Substance: CIPROFLOXACIN HYDROCHLORIDE

REACTIONS (14)
  - Bowel movement irregularity [None]
  - Rotator cuff syndrome [None]
  - Ligament disorder [None]
  - Neck pain [None]
  - Impaired work ability [None]
  - Muscular weakness [None]
  - Insomnia [None]
  - Headache [None]
  - Hypertension [None]
  - Neuropathy peripheral [None]
  - Fatigue [None]
  - Sleep disorder [None]
  - General physical health deterioration [None]
  - Memory impairment [None]
